FAERS Safety Report 10936551 (Version 1)
Quarter: 2015Q1

REPORT INFORMATION
  Report Type: Spontaneous
  Country: US (occurrence: None)
  Receive Date: 20150212
  Receipt Date: 20150212
  Transmission Date: 20150721
  Serious: No
  Sender: FDA-Public Use
  Company Number: TPA2011A06187

PATIENT
  Sex: Female

DRUGS (3)
  1. ULORIC [Suspect]
     Active Substance: FEBUXOSTAT
     Indication: GOUT
     Dosage: 1 IN 1 D
     Route: 048
  2. HYDROCHLOROTHIAZIDE (HYDROCHLOROTHIAZIDE) [Suspect]
     Active Substance: HYDROCHLOROTHIAZIDE
     Dates: start: 20110914
  3. LISINOPRIL (LISINOPRIL) [Suspect]
     Active Substance: LISINOPRIL
     Dates: start: 20110914

REACTIONS (2)
  - Oedema peripheral [None]
  - Swelling face [None]

NARRATIVE: CASE EVENT DATE: 201109
